FAERS Safety Report 17661885 (Version 6)
Quarter: 2020Q4

REPORT INFORMATION
  Report Type: Report from Study
  Country: US (occurrence: US)
  Receive Date: 20200413
  Receipt Date: 20201119
  Transmission Date: 20210113
  Serious: Yes (Life-Threatening, Hospitalization, Other)
  Sender: FDA-Public Use
  Company Number: US-SA-2020SA085682

PATIENT

DRUGS (60)
  1. ACETAMINOPHEN. [Concomitant]
     Active Substance: ACETAMINOPHEN
     Dosage: 650 MG, PRN
     Route: 048
     Dates: start: 20200318
  2. FUROSEMIDE. [Concomitant]
     Active Substance: FUROSEMIDE
     Indication: FLUID OVERLOAD
     Dosage: 20 MG, QD
     Route: 042
     Dates: start: 20200319
  3. FUROSEMIDE. [Concomitant]
     Active Substance: FUROSEMIDE
     Dosage: 20 MG, QD
     Route: 042
     Dates: start: 20200319
  4. ASCORBIC ACID. [Concomitant]
     Active Substance: ASCORBIC ACID
     Dosage: 1500 MG, Q6H
     Route: 042
     Dates: start: 20200319, end: 20200324
  5. AZITROMYCIN [Concomitant]
     Active Substance: AZITHROMYCIN ANHYDROUS
     Indication: PNEUMONIA
     Dosage: 500 MG, QD
     Route: 042
     Dates: start: 20200319, end: 20200322
  6. CHLOROQUINE. [Concomitant]
     Active Substance: CHLOROQUINE
     Indication: COVID-19 PNEUMONIA
     Dosage: 500 MG, QID
     Route: 048
     Dates: start: 20200319, end: 20200324
  7. PHENYLEPHRINE [Concomitant]
     Active Substance: PHENYLEPHRINE HYDROCHLORIDE
     Dosage: UNK
  8. MIDAZOLAM. [Concomitant]
     Active Substance: MIDAZOLAM
     Dosage: 4 MG, 1X
     Route: 042
     Dates: start: 20200403, end: 20200403
  9. POLYETHYLENE GLYCOL [Concomitant]
     Active Substance: POLYETHYLENE GLYCOLS
     Indication: DIARRHOEA
     Dosage: 17 G, Q12H
     Route: 048
     Dates: start: 20200331
  10. DEXMEDETOMIDINE. [Concomitant]
     Active Substance: DEXMEDETOMIDINE
     Indication: SEDATION
     Dosage: 200 UG
     Route: 042
     Dates: start: 20200401, end: 20200415
  11. ASPIRIN [ACETYLSALICYLIC ACID] [Concomitant]
     Active Substance: ASPIRIN
     Indication: CORONARY ARTERY DISEASE
     Dosage: 81 MG, QD
     Route: 048
     Dates: start: 20200330, end: 20200417
  12. ATORVASTIN [Concomitant]
     Active Substance: ATORVASTATIN
     Indication: HYPERCHOLESTEROLAEMIA
  13. PANTOPRAZOLE [Concomitant]
     Active Substance: PANTOPRAZOLE
     Indication: PROPHYLAXIS
     Dosage: 40 MG, QD
     Dates: start: 20200331, end: 20200402
  14. HEPARIN [Concomitant]
     Active Substance: HEPARIN SODIUM
     Indication: DEEP VEIN THROMBOSIS
     Dosage: 5000 U, TID
     Route: 058
     Dates: start: 20200330, end: 20200404
  15. HEPARIN [Concomitant]
     Active Substance: HEPARIN SODIUM
     Dosage: 5000 UNITS Q6H PRN FOR APTT BETWEEN 40-57
     Route: 058
     Dates: start: 20200404
  16. CALCIUM GLUCONATE. [Concomitant]
     Active Substance: CALCIUM GLUCONATE
     Indication: HYPOCALCAEMIA
  17. METHYLPREDNISOLONE. [Concomitant]
     Active Substance: METHYLPREDNISOLONE
     Dosage: 60 MG, Q12H
     Dates: start: 20200404, end: 20200407
  18. MIDAZOLAM. [Concomitant]
     Active Substance: MIDAZOLAM
     Indication: SEDATION
     Dosage: 2 MG, 1X
     Route: 042
     Dates: start: 20200323, end: 20200323
  19. HYDROXYCHLOROQUINE [Concomitant]
     Active Substance: HYDROXYCHLOROQUINE
     Indication: AUTOIMMUNE DISORDER
     Route: 065
  20. PANTOPRAZOLE [Concomitant]
     Active Substance: PANTOPRAZOLE
     Indication: PROPHYLAXIS
     Dosage: 40 MG, QD
     Route: 048
     Dates: start: 20200406, end: 20200410
  21. LOSARTAN. [Concomitant]
     Active Substance: LOSARTAN
     Indication: HYPERTENSION
     Dosage: 25 MG, QD
     Route: 048
     Dates: start: 20200323
  22. INSULIN LISPRO [Concomitant]
     Active Substance: INSULIN LISPRO
     Dosage: 4 MG, Q6H
     Route: 042
     Dates: start: 20200409, end: 20200410
  23. LEVOFLOXACINE [LEVOFLOXACIN] [Concomitant]
     Active Substance: LEVOFLOXACIN
     Indication: PYREXIA
     Dosage: 750 MG
     Route: 042
     Dates: start: 20200502
  24. INSULIN NPH [INSULIN ISOPHANE BOVINE] [Concomitant]
     Dosage: 10 IU, QD
     Route: 058
     Dates: start: 20200504, end: 20200506
  25. INSULIN NPH [INSULIN ISOPHANE BOVINE] [Concomitant]
     Dosage: 35 IU, QD
     Route: 058
     Dates: start: 20200506
  26. PHENYLEPHRINE [Concomitant]
     Active Substance: PHENYLEPHRINE HYDROCHLORIDE
     Indication: PNEUMONIA
     Dosage: 160 MG, CONT
     Route: 042
     Dates: start: 20200319
  27. NOREPINEPHRINE. [Concomitant]
     Active Substance: NOREPINEPHRINE
     Indication: PNEUMONIA
     Dosage: 32 MG, CONT
     Route: 042
     Dates: start: 20200322
  28. CALCIUM GLUCONATE. [Concomitant]
     Active Substance: CALCIUM GLUCONATE
     Indication: HYPOCALCAEMIA
     Dosage: 2 G, 1X
     Route: 042
     Dates: start: 20200322, end: 20200322
  29. POLYETHYLENE GLYCOL [Concomitant]
     Active Substance: POLYETHYLENE GLYCOLS
     Indication: DIARRHOEA
  30. INSULIN LISPRO [Concomitant]
     Active Substance: INSULIN LISPRO
     Indication: DIABETES MELLITUS
     Dosage: 4 MG, 1X
     Route: 042
     Dates: start: 20200403, end: 20200403
  31. INSULIN LISPRO [Concomitant]
     Active Substance: INSULIN LISPRO
     Indication: DIABETES MELLITUS
     Dosage: UNK, Q6H
     Route: 058
     Dates: start: 20200428
  32. SARILUMAB [Suspect]
     Active Substance: SARILUMAB
     Indication: COVID-19
     Dosage: 200 MG, 1X
     Route: 042
     Dates: start: 20200321, end: 20200321
  33. FLUTICASONE. [Concomitant]
     Active Substance: FLUTICASONE
     Indication: ASTHMA
     Dosage: 50 INHALATIONS, BID
     Route: 055
     Dates: start: 20200319, end: 20200319
  34. FENTANYL. [Concomitant]
     Active Substance: FENTANYL
     Indication: SEDATION
     Dosage: 100 UG, 1X
     Route: 042
     Dates: start: 20200323, end: 20200323
  35. MAGNESIUM SULFATE. [Concomitant]
     Active Substance: MAGNESIUM SULFATE
     Indication: SUPPLEMENTATION THERAPY
     Dosage: 1 G, 1X
     Route: 042
     Dates: start: 20200322, end: 20200322
  36. SENNA [SENNA ALEXANDRINA] [Concomitant]
     Active Substance: SENNA LEAF
     Indication: DIARRHOEA
     Dosage: 10 ML, QD
     Route: 048
     Dates: start: 20200331, end: 20200407
  37. CASPOFUNGIN [Concomitant]
     Active Substance: CASPOFUNGIN
     Indication: ANTIFUNGAL TREATMENT
     Dosage: 50 MG, QD
     Route: 042
     Dates: start: 20200506
  38. INSULIN NPH [INSULIN ISOPHANE BOVINE] [Concomitant]
     Indication: DIABETES MELLITUS
     Dosage: 35 IU, Q12H
     Route: 058
     Dates: start: 20200501, end: 20200506
  39. CISATRACURIUM. [Concomitant]
     Active Substance: CISATRACURIUM
     Indication: SEDATION
     Dosage: 10 MG, SINGLE
     Route: 042
     Dates: start: 20200323, end: 20200324
  40. METHYLPREDNISOLONE. [Concomitant]
     Active Substance: METHYLPREDNISOLONE
     Dosage: 500 MG
     Dates: start: 20200420, end: 20200424
  41. KETAMINE [Concomitant]
     Active Substance: KETAMINE
     Indication: SEDATION
     Dosage: 2000 MG, CONT
     Route: 042
     Dates: start: 20200324
  42. ATORVASTIN [Concomitant]
     Active Substance: ATORVASTATIN
     Indication: HYPERCHOLESTEROLAEMIA
     Dosage: 80 MG, QD
     Dates: start: 20200328, end: 20200403
  43. FAMOTIDINE. [Concomitant]
     Active Substance: FAMOTIDINE
     Indication: COVID-19 PNEUMONIA
     Dosage: 20 MG, QD
     Route: 042
     Dates: start: 20200402, end: 20200406
  44. INSULIN NPH [INSULIN ISOPHANE BOVINE] [Concomitant]
     Dosage: 8 IU, Q12H
     Route: 058
     Dates: start: 20200506
  45. NOREPINEPHRINE. [Concomitant]
     Active Substance: NOREPINEPHRINE
     Dosage: 32 MG, UNK
     Route: 042
     Dates: start: 20200322, end: 20200425
  46. FENTANYL. [Concomitant]
     Active Substance: FENTANYL
     Dosage: 100 UG, 1X
     Dates: start: 20200403, end: 20200403
  47. METHYLPREDNISOLONE. [Concomitant]
     Active Substance: METHYLPREDNISOLONE
     Indication: PNEUMONIA
     Dosage: 125 MG, 1X
     Route: 042
     Dates: start: 20200325, end: 20200325
  48. SODIUM BICARBONATE. [Concomitant]
     Active Substance: SODIUM BICARBONATE
     Indication: PNEUMONIA
     Dosage: 50 MEQ, 1X
     Route: 042
     Dates: start: 20200324, end: 20200324
  49. MEROPENEM. [Concomitant]
     Active Substance: MEROPENEM
     Indication: COVID-19 PNEUMONIA
     Dosage: 1000 MG, Q8H
     Route: 042
     Dates: start: 20200331, end: 20200404
  50. PREDNISONE. [Concomitant]
     Active Substance: PREDNISONE
     Indication: PNEUMONIA
     Dosage: 30 MG, QD
     Route: 048
     Dates: start: 20200505, end: 20200507
  51. ACETAMINOPHEN. [Concomitant]
     Active Substance: ACETAMINOPHEN
     Indication: PYREXIA
     Dosage: 1000 MG, PRN
     Route: 048
     Dates: start: 20200320
  52. ACETAMINOPHEN. [Concomitant]
     Active Substance: ACETAMINOPHEN
     Dosage: 650 MG
     Route: 048
     Dates: start: 20200318
  53. ASCORBIC ACID. [Concomitant]
     Active Substance: ASCORBIC ACID
     Indication: COVID-19
     Dosage: 1500 MG, QID
     Route: 042
     Dates: start: 20200319
  54. PHENOBARBITAL. [Concomitant]
     Active Substance: PHENOBARBITAL
     Indication: SEDATION
     Dosage: 130 MG, ONCE
     Route: 042
     Dates: start: 20200413, end: 20200415
  55. FUROSEMIDE. [Concomitant]
     Active Substance: FUROSEMIDE
     Indication: FLUID OVERLOAD
     Dosage: 60 MG, QD
     Route: 042
     Dates: start: 20200322, end: 20200322
  56. PHENYLEPHRINE [Concomitant]
     Active Substance: PHENYLEPHRINE HYDROCHLORIDE
     Dosage: 160 MG, UNK
     Route: 042
     Dates: start: 20200319, end: 20200407
  57. METHYLPREDNISOLONE. [Concomitant]
     Active Substance: METHYLPREDNISOLONE
     Dosage: 45 MG, Q12H
     Dates: start: 20200417, end: 20200417
  58. SODIUM BICARBONATE. [Concomitant]
     Active Substance: SODIUM BICARBONATE
     Dosage: 650 MG, Q12H
     Route: 048
     Dates: start: 20200404
  59. VANCOMYCIN [Concomitant]
     Active Substance: VANCOMYCIN
     Indication: COVID-19 PNEUMONIA
     Dosage: 1000 MG, TID
     Route: 042
     Dates: start: 20200324, end: 20200401
  60. CEFEPIME [Concomitant]
     Active Substance: CEFEPIME HYDROCHLORIDE
     Indication: COVID-19 PNEUMONIA
     Dosage: 1000 MG, IN DEXTROSE 5% 50ML, INFUSE OVER 30  MINUTES EVERY
     Route: 042
     Dates: start: 20200324, end: 20200401

REACTIONS (4)
  - Encephalopathy [Not Recovered/Not Resolved]
  - Pulmonary embolism [Not Recovered/Not Resolved]
  - Liver function test abnormal [Not Recovered/Not Resolved]
  - Acute kidney injury [Recovered/Resolved]

NARRATIVE: CASE EVENT DATE: 20200322
